FAERS Safety Report 9675227 (Version 1)
Quarter: 2013Q4

REPORT INFORMATION
  Report Type: Spontaneous
  Country: US (occurrence: None)
  Receive Date: 20131105
  Receipt Date: 20131105
  Transmission Date: 20140711
  Serious: Yes (Death, Life-Threatening, Other)
  Sender: FDA-Public Use
  Company Number: 2013US002778

PATIENT
  Age: 61 Year
  Sex: Male
  Weight: 86 kg

DRUGS (16)
  1. ICLUSING [Suspect]
     Indication: ACUTE LYMPHOCYTIC LEUKAEMIA
     Route: 048
     Dates: start: 20130719
  2. OXYCONTIN (OXYCODONE HYDROCHLORIDE) [Concomitant]
  3. OXYCODONE (OXYCODONE) [Concomitant]
  4. VORICONAZOLE (VORICONAZOLE) [Concomitant]
  5. PREDNISONE (PREDNISONE) [Concomitant]
  6. GABAPENTIN (GABAPENTIN) [Concomitant]
  7. COMPAZINE (PROCHLORPERAZINE EDISYLATE) [Concomitant]
  8. DIGOXIN (DIGOXIN) [Concomitant]
  9. DOCUSATE SODIUM (DOCUSATE SODIUM) [Concomitant]
  10. LEVOFLOXACIN (LEVOFLOXACIN) [Concomitant]
  11. MELATONIN (MELATONIN) [Concomitant]
  12. METOPROLOL TARTRATE (METOPROLOL TARTRATE) [Concomitant]
  13. OMEPRAZOLE (OMEPRAZOLE) [Concomitant]
  14. POLYETHYLENE GLYCOL (POLYETHYLENE GLYCOL) [Concomitant]
  15. CIPRO (CIPROFLOXACIN) [Concomitant]
  16. ALLOPURINOL [Concomitant]

REACTIONS (8)
  - Staphylococcal bacteraemia [None]
  - Cardiac arrest [None]
  - Unresponsive to stimuli [None]
  - Skull fracture [None]
  - Fall [None]
  - Subarachnoid haemorrhage [None]
  - Subdural haematoma [None]
  - Sepsis [None]
